FAERS Safety Report 15703176 (Version 1)
Quarter: 2018Q4

REPORT INFORMATION
  Report Type: Spontaneous
  Country: US (occurrence: US)
  Receive Date: 20181127
  Receipt Date: 20181127
  Transmission Date: 20190205
  Serious: Yes (Other)
  Sender: FDA-Public Use
  Company Number: None

PATIENT
  Age: 63 Year
  Sex: Female
  Weight: 59.4 kg

DRUGS (7)
  1. ACYCLOVIR. [Concomitant]
     Active Substance: ACYCLOVIR
  2. XGEVA [Concomitant]
     Active Substance: DENOSUMAB
  3. NINLARO [Suspect]
     Active Substance: IXAZOMIB CITRATE
     Indication: PLASMA CELL MYELOMA
     Route: 048
  4. FENTANYL. [Concomitant]
     Active Substance: FENTANYL
  5. DEXAMETHASONE. [Concomitant]
     Active Substance: DEXAMETHASONE
  6. REVLIMID [Concomitant]
     Active Substance: LENALIDOMIDE
  7. VELCADE [Concomitant]
     Active Substance: BORTEZOMIB

REACTIONS (2)
  - Nausea [None]
  - Diarrhoea [None]

NARRATIVE: CASE EVENT DATE: 20181127
